FAERS Safety Report 5658856-0 (Version None)
Quarter: 2008Q1

REPORT INFORMATION
  Report Type: 
  Country: None (occurrence: None)
  Receive Date: 20080310
  Receipt Date: 20070426
  Transmission Date: 20080703
  Serious: No
  Sender: FDA-Public Use
  Company Number: US-BAYER-200711307BCC

PATIENT
  Age: 73 Year
  Sex: Female
  Weight: 57 kg

DRUGS (9)
  1. ALEVE [Suspect]
     Indication: ARTHRALGIA
     Route: 048
  2. ALEVE [Suspect]
     Dosage: TOTAL DAILY DOSE: 880 MG  UNIT DOSE: 220 MG
     Route: 048
     Dates: start: 20060101
  3. ALEVE [Suspect]
     Dosage: TOTAL DAILY DOSE: 660 MG  UNIT DOSE: 220 MG
     Route: 048
  4. ALEVE [Suspect]
     Dosage: TOTAL DAILY DOSE: 1100 MG  UNIT DOSE: 220 MG
     Route: 048
  5. FOSAMAX [Concomitant]
  6. ZOCOR [Concomitant]
  7. SYNTHROID [Concomitant]
  8. CENTRUM SILVER [Concomitant]
  9. EXCEDRIN [Concomitant]

REACTIONS (1)
  - ARTHRALGIA [None]
